FAERS Safety Report 9264139 (Version 2)
Quarter: 2013Q4

REPORT INFORMATION
  Report Type: Spontaneous
  Country: US (occurrence: US)
  Receive Date: 20130430
  Receipt Date: 20131120
  Transmission Date: 20140711
  Serious: Yes (Other)
  Sender: FDA-Public Use
  Company Number: US-ROXANE LABORATORIES, INC.-2013-RO-00653RO

PATIENT
  Age: 61 Year
  Sex: Female
  Weight: 77 kg

DRUGS (3)
  1. FLUTICASONE [Suspect]
     Indication: SINUSITIS
     Dates: start: 20130420
  2. FLUTICASONE [Suspect]
     Indication: HYPERSENSITIVITY
  3. AMOXICILLIN [Suspect]
     Indication: SINUSITIS
     Dates: start: 20130420, end: 20130430

REACTIONS (3)
  - Dyspnoea [Unknown]
  - Blood pressure increased [Unknown]
  - Chest pain [Unknown]
